FAERS Safety Report 16657626 (Version 1)
Quarter: 2019Q3

REPORT INFORMATION
  Report Type: Report from Study
  Country: IT (occurrence: IT)
  Receive Date: 20190801
  Receipt Date: 20190801
  Transmission Date: 20191004
  Serious: Yes (Other)
  Sender: FDA-Public Use
  Company Number: IT-BRISTOL-MYERS SQUIBB COMPANY-BMS-2019-072351

PATIENT
  Age: 88 Year
  Sex: Female

DRUGS (1)
  1. WARFARIN SODIUM. [Suspect]
     Active Substance: WARFARIN SODIUM
     Indication: THROMBOSIS PROPHYLAXIS
     Dosage: 5 MILLIGRAM, DAILY (UNSPECIFIED FREQUENCY)
     Route: 048
     Dates: start: 20190319

REACTIONS (2)
  - Rectal haemorrhage [Recovering/Resolving]
  - Rectal ulcer [Recovering/Resolving]

NARRATIVE: CASE EVENT DATE: 20190419
